APPROVED DRUG PRODUCT: DIPHENOXYLATE HYDROCHLORIDE AND ATROPINE SULFATE
Active Ingredient: ATROPINE SULFATE; DIPHENOXYLATE HYDROCHLORIDE
Strength: 0.025MG;2.5MG
Dosage Form/Route: TABLET;ORAL
Application: A040357 | Product #001
Applicant: STRIDES PHARMA INTERNATIONAL AG
Approved: May 2, 2000 | RLD: No | RS: No | Type: DISCN